FAERS Safety Report 20891193 (Version 1)
Quarter: 2022Q2

REPORT INFORMATION
  Report Type: Spontaneous
  Country: HR (occurrence: HR)
  Receive Date: 20220530
  Receipt Date: 20220530
  Transmission Date: 20220721
  Serious: Yes (Hospitalization, Other)
  Sender: FDA-Public Use
  Company Number: HR-PFIZER INC-202200745469

PATIENT
  Sex: Female

DRUGS (2)
  1. IBRANCE [Suspect]
     Active Substance: PALBOCICLIB
     Dosage: 125 MG, 1X/DAY (125 MG, 1X/DAY FOR 21 DAYS, THEN 7 DAYS BREAK)
     Dates: start: 201809
  2. FULVESTRANT [Suspect]
     Active Substance: FULVESTRANT
     Dosage: 500 MG
     Route: 030
     Dates: start: 201710

REACTIONS (7)
  - Neutropenia [Unknown]
  - Leukopenia [Unknown]
  - COVID-19 pneumonia [Recovered/Resolved]
  - Pulmonary embolism [Recovered/Resolved]
  - Disease progression [Unknown]
  - Pleural effusion [Unknown]
  - Arthralgia [Unknown]

NARRATIVE: CASE EVENT DATE: 20190101
